FAERS Safety Report 4911866-0 (Version None)
Quarter: 2006Q1

REPORT INFORMATION
  Report Type: 
  Country: None (occurrence: None)
  Receive Date: 20060215
  Receipt Date: 20060203
  Transmission Date: 20060701
  Serious: Yes (Disabling)
  Sender: FDA-Public Use
  Company Number: CH-JNJFOC-20060201033

PATIENT
  Age: 73 Year
  Sex: Female

DRUGS (6)
  1. REMINYL [Suspect]
     Route: 048
  2. REMINYL [Suspect]
     Indication: DRUG USE FOR UNKNOWN INDICATION
     Route: 048
  3. ASPIRIN [Concomitant]
     Route: 048
  4. SIMCORA [Concomitant]
     Indication: HYPERLIPIDAEMIA
     Route: 048
  5. ATACAND HCT [Concomitant]
  6. ATACAND HCT [Concomitant]
     Indication: ESSENTIAL HYPERTENSION

REACTIONS (1)
  - RETINAL VEIN THROMBOSIS [None]
